FAERS Safety Report 10076575 (Version 2)
Quarter: 2014Q2

REPORT INFORMATION
  Report Type: Spontaneous
  Country: US (occurrence: US)
  Receive Date: 20140414
  Receipt Date: 20140428
  Transmission Date: 20141212
  Serious: No
  Sender: FDA-Public Use
  Company Number: US-PFIZER INC-2014102573

PATIENT
  Sex: Female

DRUGS (3)
  1. LYRICA [Suspect]
     Indication: FIBROMYALGIA
     Dosage: 50 MG, 2X/DAY
     Dates: start: 2014, end: 2014
  2. LYRICA [Suspect]
     Dosage: 100 MG, 2X/DAY
     Dates: start: 2014, end: 2014
  3. LYRICA [Suspect]
     Dosage: 150 MG, 2X/DAY
     Dates: start: 2014

REACTIONS (1)
  - Pain [Unknown]
